FAERS Safety Report 9368942 (Version 2)
Quarter: 2013Q3

REPORT INFORMATION
  Report Type: Spontaneous
  Country: FR (occurrence: None)
  Receive Date: 20130621
  Receipt Date: 20130710
  Transmission Date: 20140515
  Serious: Yes (Disabling)
  Sender: FDA-Public Use
  Company Number: 2013-2478

PATIENT
  Age: 51 Year
  Sex: Female

DRUGS (1)
  1. DYSPORT [Suspect]
     Indication: TORTICOLLIS
     Dosage: 500 UNITS (500 UNITS, 1 IN 1CYCLE (S)), INTRAMUSCULAR
     Route: 030
     Dates: start: 20130419, end: 20130419

REACTIONS (4)
  - Dysphagia [None]
  - Neck pain [None]
  - Mastication disorder [None]
  - Sensation of heaviness [None]
